FAERS Safety Report 7290184-2 (Version None)
Quarter: 2011Q1

REPORT INFORMATION
  Report Type: 
  Country: None (occurrence: None)
  Receive Date: 20110214
  Receipt Date: 20110201
  Transmission Date: 20110831
  Serious: Yes (Other)
  Sender: FDA-Public Use
  Company Number: PHHY2010CA76634

PATIENT

DRUGS (1)
  1. ALISKIREN [Suspect]
     Dosage: 300 MG/DAILY

REACTIONS (2)
  - MICROALBUMINURIA [None]
  - HYPERTENSION [None]
